FAERS Safety Report 6094949-4 (Version None)
Quarter: 2009Q1

REPORT INFORMATION
  Report Type: 
  Country: None (occurrence: None)
  Receive Date: 20090227
  Receipt Date: 20090218
  Transmission Date: 20090719
  Serious: Yes (Hospitalization, Other)
  Sender: FDA-Public Use
  Company Number: SE-PFIZER INC-2009162864

PATIENT

DRUGS (6)
  1. LIPITOR [Suspect]
     Dosage: 20 MG, UNK
     Route: 048
     Dates: start: 20080301, end: 20090205
  2. BEHEPAN [Suspect]
     Dosage: UNK
     Dates: end: 20080101
  3. TROMBYL [Suspect]
     Indication: ANGINA PECTORIS
     Dosage: 75 MG, UNK
     Route: 048
     Dates: start: 20060101, end: 20080101
  4. ETORICOXIB [Suspect]
     Dosage: UNK
     Dates: end: 20080101
  5. GLUCOSAMINE [Concomitant]
  6. PLAVIX [Concomitant]

REACTIONS (5)
  - ALANINE AMINOTRANSFERASE ABNORMAL [None]
  - ASPARTATE AMINOTRANSFERASE ABNORMAL [None]
  - CORONARY ARTERY BYPASS [None]
  - INTESTINAL PERFORATION [None]
  - VITAMIN B12 ABNORMAL [None]
